FAERS Safety Report 16434200 (Version 1)
Quarter: 2019Q2

REPORT INFORMATION
  Report Type: Spontaneous
  Country: US (occurrence: US)
  Receive Date: 20190614
  Receipt Date: 20190614
  Transmission Date: 20190711
  Serious: Yes (Hospitalization)
  Sender: FDA-Public Use
  Company Number: US-PERRIGO-19US007087

PATIENT
  Age: 31 Year
  Sex: Male

DRUGS (1)
  1. LOPERAMIDE HYDROCHLORIDE. [Suspect]
     Active Substance: LOPERAMIDE HYDROCHLORIDE
     Indication: INTENTIONAL PRODUCT MISUSE
     Dosage: 100 MG, QOD, FOR AT LEAST A MONTH
     Route: 048

REACTIONS (6)
  - Overdose [Recovered/Resolved]
  - Ventricular tachycardia [Recovered/Resolved]
  - Electrocardiogram QT prolonged [Recovering/Resolving]
  - Electrocardiogram QRS complex prolonged [Recovering/Resolving]
  - Unresponsive to stimuli [Recovered/Resolved]
  - Toxicity to various agents [Recovered/Resolved]
